FAERS Safety Report 8312118-1 (Version None)
Quarter: 2012Q2

REPORT INFORMATION
  Report Type: 
  Country: None (occurrence: None)
  Receive Date: 20120425
  Receipt Date: 20120418
  Transmission Date: 20120825
  Serious: Yes (Other)
  Sender: FDA-Public Use
  Company Number: US-DX529-2012DX000096

PATIENT
  Age: 48 Year
  Sex: Female
  Weight: 58.97 kg

DRUGS (5)
  1. DANAZOL [Concomitant]
     Indication: HEREDITARY ANGIOEDEMA
  2. KALBITOR [Suspect]
     Indication: HEREDITARY ANGIOEDEMA
     Route: 058
  3. CINRYZE [Concomitant]
     Indication: HEREDITARY ANGIOEDEMA
     Dosage: DOSE UNIT:1000 UNITS
  4. KALBITOR [Suspect]
     Route: 058
     Dates: start: 20120315, end: 20120315
  5. FIRAZYR [Concomitant]
     Indication: HEREDITARY ANGIOEDEMA
     Dates: start: 20120101

REACTIONS (5)
  - HYPERSENSITIVITY [None]
  - THERAPEUTIC RESPONSE DECREASED [None]
  - DRUG INEFFECTIVE FOR UNAPPROVED INDICATION [None]
  - ERYTHEMA [None]
  - DYSPNOEA [None]
